FAERS Safety Report 4636087-0 (Version None)
Quarter: 2005Q2

REPORT INFORMATION
  Report Type: 
  Country: None (occurrence: None)
  Receive Date: 20050325
  Receipt Date: 20050110
  Transmission Date: 20051028
  Serious: No
  Sender: FDA-Public Use
  Company Number: USA040671212

PATIENT
  Age: 58 Year
  Sex: Female
  Weight: 57 kg

DRUGS (5)
  1. FORTEO [Suspect]
     Indication: OSTEOPOROSIS
     Dosage: 20 UG DAY
     Dates: start: 20040623, end: 20050106
  2. LOVASTATIN [Concomitant]
  3. LEVOXYL [Concomitant]
  4. ARTHROTEC [Concomitant]
  5. CALCIUM GLUCONATE [Concomitant]

REACTIONS (3)
  - BLOOD CALCIUM INCREASED [None]
  - INJECTION SITE ERYTHEMA [None]
  - WEIGHT DECREASED [None]
